FAERS Safety Report 7010954-5 (Version None)
Quarter: 2010Q3

REPORT INFORMATION
  Report Type: 
  Country: None (occurrence: None)
  Receive Date: 20100922
  Receipt Date: 20100922
  Transmission Date: 20110219
  Serious: Yes (Life-Threatening, Hospitalization, Disabling, Other)
  Sender: FDA-Public Use
  Company Number: None

PATIENT
  Age: 19 Year
  Sex: Female
  Weight: 111.1313 kg

DRUGS (2)
  1. LAMOTRIGINE [Suspect]
     Indication: BIPOLAR DISORDER
     Dosage: 5 MG 1 A DAY PO
     Route: 048
     Dates: start: 20070110, end: 20100916
  2. SPINAL TAP [Concomitant]

REACTIONS (4)
  - CHEST PAIN [None]
  - FATIGUE [None]
  - MENINGITIS ASEPTIC [None]
  - VISUAL IMPAIRMENT [None]
